FAERS Safety Report 13075019 (Version 2)
Quarter: 2017Q1

REPORT INFORMATION
  Report Type: Spontaneous
  Country: US (occurrence: US)
  Receive Date: 20161230
  Receipt Date: 20170110
  Transmission Date: 20170428
  Serious: No
  Sender: FDA-Public Use
  Company Number: US-BAYER-2016-247440

PATIENT
  Age: 12 Year
  Sex: Female
  Weight: 43.99 kg

DRUGS (7)
  1. CLARITIN [Concomitant]
     Active Substance: LORATADINE
  2. PANTOPRAZOLE [Concomitant]
     Active Substance: PANTOPRAZOLE SODIUM
  3. GAS-X [Concomitant]
     Active Substance: DIMETHICONE
  4. FLINTSTONES GUMMIES [Concomitant]
     Active Substance: VITAMINS
  5. MIRALAX [Suspect]
     Active Substance: POLYETHYLENE GLYCOL 3350
     Indication: BOWEL MOVEMENT IRREGULARITY
     Dosage: 1 TABLESPOON DAILY
     Route: 048
     Dates: end: 20170109
  6. PROBIOTICS [Concomitant]
     Active Substance: PROBIOTICS NOS
  7. CYPROHEPTADINE. [Concomitant]
     Active Substance: CYPROHEPTADINE

REACTIONS (2)
  - Product deposit [Unknown]
  - Product use issue [Unknown]
